FAERS Safety Report 9786372 (Version 2)
Quarter: 2014Q1

REPORT INFORMATION
  Report Type: Spontaneous
  Country: GB (occurrence: GB)
  Receive Date: 20131227
  Receipt Date: 20140205
  Transmission Date: 20141002
  Serious: Yes (Death, Hospitalization, Other)
  Sender: FDA-Public Use
  Company Number: GB-PFIZER INC-2013366671

PATIENT
  Age: 47 Year
  Sex: Female

DRUGS (7)
  1. SULFASALAZINE [Suspect]
     Indication: COLITIS ULCERATIVE
     Dosage: 8 G, 1X/DAY
     Dates: start: 19621221, end: 19630308
  2. SULFASALAZINE [Suspect]
     Dosage: 6 G, UNK
     Dates: start: 19630309
  3. PREDNISOLONE [Concomitant]
     Indication: COLITIS ULCERATIVE
     Dosage: 15 MG, DAILY
     Dates: start: 19621221
  4. PREDNISOLONE [Concomitant]
     Dosage: 30 MG, DAILY
  5. PREDNISOLONE [Concomitant]
     Dosage: 40 MG, 1X/DAY
     Route: 048
  6. HYDROCORTISONE [Concomitant]
     Indication: COLITIS ULCERATIVE
     Dosage: RETENTION ENEMAS
     Route: 054
     Dates: start: 19621221
  7. FERROUS SULPHATE [Concomitant]
     Dosage: UNK

REACTIONS (3)
  - Interstitial lung disease [Fatal]
  - Idiopathic pulmonary fibrosis [Fatal]
  - Pulmonary toxicity [Fatal]
